FAERS Safety Report 25795427 (Version 1)
Quarter: 2025Q3

REPORT INFORMATION
  Report Type: Spontaneous
  Country: EU (occurrence: EU)
  Receive Date: 20250912
  Receipt Date: 20250912
  Transmission Date: 20251020
  Serious: Yes (Death, Hospitalization)
  Sender: RANBAXY
  Company Number: EU-AEMPS-1689088

PATIENT
  Age: 92 Year
  Sex: Male

DRUGS (2)
  1. ERTAPENEM [Suspect]
     Active Substance: ERTAPENEM
     Indication: Urinary tract infection
     Dosage: 700 MILLIGRAM, QD
     Route: 040
     Dates: start: 20250128, end: 20250203
  2. FLUCONAZOLE [Concomitant]
     Active Substance: FLUCONAZOLE
     Indication: Urinary tract infection
     Dosage: 200 MILLIGRAM, QD
     Route: 040
     Dates: start: 20250111, end: 20250121

REACTIONS (1)
  - Clostridium difficile infection [Fatal]

NARRATIVE: CASE EVENT DATE: 20250207
